FAERS Safety Report 10462983 (Version 1)
Quarter: 2014Q3

REPORT INFORMATION
  Report Type: Report from Study
  Country: DE (occurrence: DE)
  Receive Date: 20140919
  Receipt Date: 20140919
  Transmission Date: 20150326
  Serious: Yes (Hospitalization)
  Sender: FDA-Public Use
  Company Number: DE-AMGEN-DEUCT2014070432

PATIENT
  Age: 65 Year
  Sex: Male
  Weight: 62 kg

DRUGS (8)
  1. CISPLATIN. [Concomitant]
     Active Substance: CISPLATIN
     Indication: OESOPHAGEAL CANCER METASTATIC
     Dosage: 173 MG, ONCE
     Route: 042
     Dates: start: 20120911
  2. PASPERTIN                          /00041902/ [Concomitant]
     Active Substance: METOCLOPRAMIDE HYDROCHLORIDE
     Dosage: UNK
     Dates: start: 20120911
  3. 5-FU                               /00098801/ [Concomitant]
     Active Substance: FLUOROURACIL
     Indication: OESOPHAGEAL CANCER METASTATIC
     Dosage: 1730 MG, QD
     Route: 042
     Dates: start: 20120911
  4. BIFITERAL [Concomitant]
     Active Substance: LACTULOSE
     Dosage: UNK
     Dates: start: 20120911
  5. PANITUMUMAB [Suspect]
     Active Substance: PANITUMUMAB
     Indication: OESOPHAGEAL CANCER METASTATIC
     Dosage: 565 MG, ONCE
     Route: 042
     Dates: start: 20120911
  6. LOPERAMID [Concomitant]
     Active Substance: LOPERAMIDE
     Dosage: UNK
     Dates: start: 20120911
  7. PANTOZOL [Concomitant]
     Active Substance: PANTOPRAZOLE SODIUM
     Dosage: UNK
     Dates: start: 201205
  8. NOVALGIN [Concomitant]
     Active Substance: METAMIZOLE SODIUM
     Dosage: UNK
     Dates: start: 20120911

REACTIONS (1)
  - Stomatitis [Recovered/Resolved]

NARRATIVE: CASE EVENT DATE: 20120919
